FAERS Safety Report 6696762-3 (Version None)
Quarter: 2010Q2

REPORT INFORMATION
  Report Type: 
  Country: None (occurrence: None)
  Receive Date: 20100426
  Receipt Date: 20100419
  Transmission Date: 20101027
  Serious: Yes (Hospitalization)
  Sender: FDA-Public Use
  Company Number: US-ELI_LILLY_AND_COMPANY-US201004004856

PATIENT
  Sex: Female

DRUGS (31)
  1. GEMCITABINE HCL [Suspect]
     Indication: NON-HODGKIN'S LYMPHOMA
     Dosage: 1200 MG, OTHER
     Route: 042
     Dates: start: 20100125
  2. OTHER PHARMA COMPANY INV DRUG [Suspect]
     Dosage: 30 MG, OTHER
     Route: 042
     Dates: start: 20100125
  3. CLONIDINE [Concomitant]
     Dates: start: 20090101
  4. DILTIAZEM HCL [Concomitant]
     Dates: start: 20100312
  5. FENOFIBRATE [Concomitant]
     Dates: start: 20091201
  6. FOLIC ACID [Concomitant]
     Dates: start: 20060301
  7. FLUTICASONE PROPIONATE [Concomitant]
  8. FUROSEMIDE [Concomitant]
     Dates: start: 20000101
  9. HYDROCODONE BITARTRATE [Concomitant]
     Dates: start: 20000113
  10. HYDROCORTISONE [Concomitant]
     Dates: start: 20090801
  11. HYDROCORT [Concomitant]
  12. LIDOCAINE 2% [Concomitant]
     Dates: start: 20090901
  13. PRILOCAINE HYDROCHLORIDE [Concomitant]
     Dates: start: 20081205
  14. LIPASE [Concomitant]
     Dates: start: 20080103
  15. LORAZEPAM [Concomitant]
     Dates: start: 20090101
  16. METOPROLOL TARTRATE [Concomitant]
  17. NIFEDIPINE [Concomitant]
  18. OMEPRAZOLE [Concomitant]
     Dates: start: 20080417
  19. ONDANSETRON HYDROCHLORIDE [Concomitant]
     Dates: start: 20090406
  20. POTASSIUM CHLORIDE [Concomitant]
     Dates: start: 20080401
  21. TRIMETHOPRIM AND SULFAMETHOXAZOLE DS [Concomitant]
  22. CYANOCOBALAMIN [Concomitant]
     Dates: start: 20100208
  23. DIPHENHYDRAMINE HYDROCHLORIDE [Concomitant]
     Dates: start: 20090101
  24. ERGOCALCIFEROL [Concomitant]
     Dates: start: 20080101
  25. LORATADINE [Concomitant]
     Dates: start: 20000101
  26. MAGNESIUM [Concomitant]
     Dates: start: 20080101
  27. OMEGA-3 FATTY ACIDS [Concomitant]
     Dates: start: 20080701
  28. ACYCLOVIR [Concomitant]
     Dates: start: 20090709
  29. ALBUTEROL SULFATE AUTOHALER [Concomitant]
  30. PROTEASE [Concomitant]
     Dates: start: 20080103
  31. AMYLASE [Concomitant]
     Dates: start: 20080103

REACTIONS (2)
  - CHEST PAIN [None]
  - PLEURAL EFFUSION [None]
